FAERS Safety Report 6574259-9 (Version None)
Quarter: 2010Q1

REPORT INFORMATION
  Report Type: 
  Country: None (occurrence: None)
  Receive Date: 20100208
  Receipt Date: 20100129
  Transmission Date: 20100710
  Serious: Yes (Hospitalization)
  Sender: FDA-Public Use
  Company Number: DE-ABBOTT-10P-062-0621854-00

PATIENT
  Sex: Female

DRUGS (1)
  1. REDUCTIL [Suspect]
     Indication: WEIGHT CONTROL
     Dosage: 2X1 CAPSULE
     Dates: end: 20091001

REACTIONS (1)
  - CEREBRAL INFARCTION [None]
